FAERS Safety Report 7364294-5 (Version None)
Quarter: 2011Q1

REPORT INFORMATION
  Report Type: 
  Country: None (occurrence: None)
  Receive Date: 20110321
  Receipt Date: 20110314
  Transmission Date: 20110831
  Serious: Yes (Hospitalization)
  Sender: FDA-Public Use
  Company Number: B0705700A

PATIENT
  Sex: Female

DRUGS (4)
  1. OGAST [Concomitant]
     Dosage: 15MG PER DAY
     Route: 048
  2. PAROXETINE HCL [Suspect]
     Dosage: 10MG PER DAY
     Route: 048
     Dates: end: 20091125
  3. KARDEGIC [Concomitant]
     Dosage: 160MG PER DAY
     Route: 048
  4. LEVOTHYROX [Concomitant]
     Indication: HYPOTHYROIDISM
     Dosage: 20DROP PER DAY
     Route: 048

REACTIONS (9)
  - DEPRESSED LEVEL OF CONSCIOUSNESS [None]
  - HEMIPLEGIA [None]
  - SINUS TACHYCARDIA [None]
  - EPILEPSY [None]
  - GRAND MAL CONVULSION [None]
  - VOMITING [None]
  - SOMNOLENCE [None]
  - BUNDLE BRANCH BLOCK LEFT [None]
  - APHASIA [None]
